FAERS Safety Report 25704325 (Version 1)
Quarter: 2025Q3

REPORT INFORMATION
  Report Type: Spontaneous
  Country: AU (occurrence: AU)
  Receive Date: 20250820
  Receipt Date: 20250820
  Transmission Date: 20251020
  Serious: Yes (Life-Threatening, Hospitalization)
  Sender: CIPLA
  Company Number: AU-TGA-0000845859

PATIENT

DRUGS (30)
  1. LENALIDOMIDE [Suspect]
     Active Substance: LENALIDOMIDE
     Indication: Follicular lymphoma
     Dosage: 20 MILLIGRAM, QD
     Route: 048
     Dates: start: 20241126, end: 20241212
  2. RITUXIMAB [Suspect]
     Active Substance: RITUXIMAB
     Indication: Follicular lymphoma
     Route: 042
     Dates: start: 20240808, end: 20240808
  3. TAZEMETOSTAT [Suspect]
     Active Substance: TAZEMETOSTAT
     Indication: Product used for unknown indication
     Dosage: 400 MILLIGRAM, BID (12 HOURS)
     Route: 048
     Dates: start: 20241126, end: 20241212
  4. TAZEMETOSTAT [Suspect]
     Active Substance: TAZEMETOSTAT
     Dosage: 400 MILLIGRAM, EVERY 2 DAYS
     Route: 048
     Dates: start: 20250527, end: 20250623
  5. APIXABAN [Concomitant]
     Active Substance: APIXABAN
     Indication: Atrial fibrillation
     Dosage: 5 MILLIGRAM, BID
     Route: 065
     Dates: start: 20120101
  6. DILTIAZEM [Concomitant]
     Active Substance: DILTIAZEM
     Indication: Hypertension
     Dosage: 60 MILLIGRAM, BID
     Route: 065
     Dates: start: 20160101
  7. ENDEP [Concomitant]
     Active Substance: AMITRIPTYLINE HYDROCHLORIDE
     Indication: Prophylaxis
     Dosage: 25 MILLIGRAM, QD (NOCTE)
     Route: 065
     Dates: start: 20231001
  8. BACTRIM [Concomitant]
     Active Substance: SULFAMETHOXAZOLE\TRIMETHOPRIM
     Indication: Antibiotic prophylaxis
     Route: 065
     Dates: start: 20240411
  9. SPIRIVA [Concomitant]
     Active Substance: TIOTROPIUM BROMIDE MONOHYDRATE
     Indication: Prophylaxis
     Dosage: 2.5 MICROGRAM, QD
     Route: 065
  10. NALOXONE HYDROCHLORIDE\OXYCODONE HYDROCHLORIDE [Concomitant]
     Active Substance: NALOXONE HYDROCHLORIDE\OXYCODONE HYDROCHLORIDE
     Indication: Cancer pain
     Dosage: 10/5 MG, BID
     Route: 065
     Dates: start: 2022
  11. ACETAMINOPHEN [Concomitant]
     Active Substance: ACETAMINOPHEN
     Indication: Cancer pain
     Dosage: 1 GRAM, QID
     Route: 065
     Dates: start: 2022
  12. CETIRIZINE HYDROCHLORIDE [Concomitant]
     Active Substance: CETIRIZINE HYDROCHLORIDE
     Indication: Rash pruritic
     Dosage: 10 MILLIGRAM, BID
     Route: 065
     Dates: start: 20240521
  13. HYDROCORTISONE [Concomitant]
     Active Substance: HYDROCORTISONE
     Indication: Rash pruritic
     Dosage: 1 DOSAGE FORM (APPLICATION), BID
     Route: 061
     Dates: start: 20240521
  14. VITAMIN B12 [Concomitant]
     Active Substance: CYANOCOBALAMIN
     Indication: Vitamin B12 deficiency
     Dosage: 1000 MICROGRAM, QD
     Route: 048
     Dates: start: 20240527
  15. FILGRASTIM [Concomitant]
     Active Substance: FILGRASTIM
     Indication: Neutropenia
     Route: 065
     Dates: start: 20240604
  16. SLOW K [Concomitant]
     Active Substance: POTASSIUM CHLORIDE
     Indication: Prophylaxis
     Dosage: 600 MILLIGRAM, QD
     Route: 065
     Dates: start: 20241001
  17. MAGNESIUM [Concomitant]
     Active Substance: MAGNESIUM
     Indication: Upper respiratory tract infection
     Dosage: 1 DOSAGE FORM, QD
     Route: 065
     Dates: start: 20241001
  18. MAGNESIUM [Concomitant]
     Active Substance: MAGNESIUM
     Dosage: 2 DOSE UNSPECIFIED, BID
     Route: 065
     Dates: start: 2022
  19. ALBUTEROL [Concomitant]
     Active Substance: ALBUTEROL
     Indication: Upper respiratory tract infection
     Route: 065
     Dates: start: 20241114
  20. OXYCODONE [Concomitant]
     Active Substance: OXYCODONE
     Indication: Upper respiratory tract infection
     Route: 065
     Dates: start: 20241109
  21. PREDNISOLONE [Concomitant]
     Active Substance: PREDNISOLONE
     Indication: Upper respiratory tract infection
     Dosage: 12.5 MILLIGRAM, QD
     Route: 065
     Dates: start: 20241119, end: 20241123
  22. PREDNISOLONE [Concomitant]
     Active Substance: PREDNISOLONE
     Indication: Chronic obstructive pulmonary disease
     Dosage: 50 MILLIGRAM, QD
     Route: 065
     Dates: start: 20250626
  23. BECLOMETHASONE DIPROPIONATE\FORMOTEROL FUMARATE\GLYCOPYRROLATE [Concomitant]
     Active Substance: BECLOMETHASONE DIPROPIONATE\FORMOTEROL FUMARATE\GLYCOPYRROLATE
     Indication: Upper respiratory tract infection
     Dosage: 2 DOSAGE FORM, BID
     Route: 065
     Dates: start: 20241115
  24. FUROSEMIDE [Concomitant]
     Active Substance: FUROSEMIDE
     Indication: Pleural effusion
     Dosage: 40 MILLIGRAM, QD
     Route: 065
     Dates: start: 20250708
  25. FUROSEMIDE [Concomitant]
     Active Substance: FUROSEMIDE
     Route: 065
  26. POTASSIUM CHLORIDE [Concomitant]
     Active Substance: POTASSIUM CHLORIDE
     Indication: Prophylaxis
     Dosage: 600 MILLIGRAM, QD
     Route: 065
     Dates: start: 20241001
  27. VALACYCLOVIR HYDROCHLORIDE [Concomitant]
     Active Substance: VALACYCLOVIR HYDROCHLORIDE
     Indication: Prophylaxis
     Route: 065
  28. ASPIRIN [Concomitant]
     Active Substance: ASPIRIN
     Indication: Thrombosis prophylaxis
     Dosage: 100 MILLIGRAM, QD
     Route: 065
     Dates: start: 20240413
  29. BREO ELLIPTA [Concomitant]
     Active Substance: FLUTICASONE FUROATE\VILANTEROL TRIFENATATE
     Indication: Prophylaxis
     Dosage: 200/25 MCG, QD
     Route: 065
     Dates: start: 2016
  30. HYDROXOCOBALAMIN [Concomitant]
     Active Substance: HYDROXOCOBALAMIN
     Indication: Vitamin B12 deficiency
     Dosage: 1000 MICROGRAM, QD
     Route: 048
     Dates: start: 20240527

REACTIONS (2)
  - Ejection fraction decreased [Not Recovered/Not Resolved]
  - Respiratory tract infection [Not Recovered/Not Resolved]

NARRATIVE: CASE EVENT DATE: 20241212
